FAERS Safety Report 6646121-4 (Version None)
Quarter: 2010Q1

REPORT INFORMATION
  Report Type: 
  Country: None (occurrence: None)
  Receive Date: 20100323
  Receipt Date: 20100310
  Transmission Date: 20100710
  Serious: Yes (Hospitalization)
  Sender: FDA-Public Use
  Company Number: GB-PFIZER INC-2006128121

PATIENT
  Age: 62 Year
  Sex: Female

DRUGS (4)
  1. SUNITINIB MALATE [Suspect]
     Indication: GASTROINTESTINAL STROMAL TUMOUR
     Dosage: 37.5 MG, DAILY - INTERVAL:  CYCLIC
     Route: 048
     Dates: start: 20060501
  2. ATENOLOL [Concomitant]
     Route: 048
  3. BENDROFLUAZIDE [Concomitant]
     Route: 048
     Dates: start: 20030101
  4. OMEPRAZOLE [Concomitant]
     Route: 048
     Dates: start: 20060901

REACTIONS (1)
  - PULMONARY EMBOLISM [None]
